FAERS Safety Report 4861567-2 (Version None)
Quarter: 2005Q4

REPORT INFORMATION
  Report Type: 
  Country: None (occurrence: None)
  Receive Date: 20051220
  Receipt Date: 20040623
  Transmission Date: 20060501
  Serious: Yes (Hospitalization, Other)
  Sender: FDA-Public Use
  Company Number: CA-BRISTOL-MYERS SQUIBB COMPANY-12628541

PATIENT
  Age: 79 Year
  Sex: Female
  Weight: 78 kg

DRUGS (21)
  1. TEQUIN [Suspect]
     Indication: URINARY TRACT INFECTION
     Route: 048
     Dates: start: 20040603, end: 20040603
  2. GLYBURIDE [Concomitant]
     Dosage: AT NOON
  3. ROSIGLITAZONE [Concomitant]
  4. FENTANYL [Concomitant]
     Route: 062
  5. FUROSEMIDE [Concomitant]
  6. WARFARIN [Concomitant]
  7. DOCUSATE [Concomitant]
     Dosage: AT HOUR OF SLEEP
  8. QUININE SULFATE [Concomitant]
     Dosage: AT HOUR OF SLEEP
  9. NITROGLYCERIN [Concomitant]
     Dosage: IN AM AND HOUR OF SLEEP
     Route: 062
  10. FERROUS GLUCONATE [Concomitant]
  11. ALLOPURINOL [Concomitant]
  12. PANTOPRAZOLE [Concomitant]
  13. RAMIPRIL [Concomitant]
  14. RISEDRONATE SODIUM [Concomitant]
  15. ACEBUTOLOL [Concomitant]
  16. ATROPINE [Concomitant]
  17. LEVOTHYROXINE SODIUM [Concomitant]
  18. OCUFLOX [Concomitant]
  19. ONDANSETRON [Concomitant]
  20. PREDNISOLONE [Concomitant]
  21. TRUSOPT [Concomitant]

REACTIONS (9)
  - ASTHENIA [None]
  - DIARRHOEA [None]
  - DISORIENTATION [None]
  - HYPERGLYCAEMIA [None]
  - HYPEROSMOLAR STATE [None]
  - HYPOGLYCAEMIA [None]
  - POLYDIPSIA [None]
  - THERAPY NON-RESPONDER [None]
  - VOMITING [None]
